FAERS Safety Report 6568385-8 (Version None)
Quarter: 2010Q1

REPORT INFORMATION
  Report Type: 
  Country: None (occurrence: None)
  Receive Date: 20100128
  Receipt Date: 20100115
  Transmission Date: 20100710
  Serious: Yes (Hospitalization)
  Sender: FDA-Public Use
  Company Number: 2010AL000339

PATIENT
  Age: 28 Year
  Sex: Male

DRUGS (4)
  1. CITALOPRAM HYDROBROMIDE [Suspect]
     Indication: DEPRESSION
     Dosage: 20 MG, PO
     Route: 048
     Dates: start: 20050821, end: 20050827
  2. OMEPRAZOLE [Concomitant]
  3. CHLORPROMAZINE [Concomitant]
  4. CLOMIPRAMINE HCL [Concomitant]

REACTIONS (3)
  - ALCOHOL WITHDRAWAL SYNDROME [None]
  - INTENTIONAL SELF-INJURY [None]
  - SUICIDE ATTEMPT [None]
